FAERS Safety Report 9119754 (Version 1)
Quarter: 2013Q1

REPORT INFORMATION
  Report Type: Spontaneous
  Country: NL (occurrence: NL)
  Receive Date: 20130207
  Receipt Date: 20130207
  Transmission Date: 20140127
  Serious: Yes (Other)
  Sender: FDA-Public Use
  Company Number: PHHY2013NL011248

PATIENT
  Sex: 0

DRUGS (6)
  1. GABAPENTIN [Suspect]
     Indication: NEURALGIA
     Dosage: 3 DF, DAILY
     Route: 048
  2. NITROFURANTOIN [Interacting]
     Indication: URINARY TRACT INFECTION
     Dosage: 1 DF, Q4H
     Route: 048
     Dates: end: 20130131
  3. CARBASALATE CALCIUM [Concomitant]
     Dosage: 1 DF, DAILY
  4. ENALAPRIL [Concomitant]
     Dosage: 1 DF, DAILY
  5. PANTOZOL [Concomitant]
     Dosage: 1 DF, DAILY
  6. GLIMEPIRIDE [Concomitant]
     Dosage: 2 DF, DAILY

REACTIONS (9)
  - Convulsion [Unknown]
  - Pyrexia [Recovered/Resolved]
  - Thirst [Unknown]
  - Chills [Unknown]
  - Headache [Not Recovered/Not Resolved]
  - Somnolence [Not Recovered/Not Resolved]
  - Sluggishness [Not Recovered/Not Resolved]
  - Cough [Not Recovered/Not Resolved]
  - Drug interaction [Unknown]
